FAERS Safety Report 5107903-3 (Version None)
Quarter: 2006Q3

REPORT INFORMATION
  Report Type: 
  Country: None (occurrence: None)
  Receive Date: 20060914
  Receipt Date: 20060905
  Transmission Date: 20061208
  Serious: Yes (Other)
  Sender: FDA-Public Use
  Company Number: 2006-02-0765

PATIENT
  Age: 57 Year
  Sex: Male
  Weight: 53 kg

DRUGS (5)
  1. PEG-INTRON [Suspect]
     Indication: HEPATITIS C
     Dosage: 80 MCG;/WK;SC
     Route: 058
     Dates: start: 20050622, end: 20060220
  2. REBETOL [Suspect]
     Indication: HEPATITIS C
     Dosage: 600 MG; QD; SC;  400 MG; QD; PO
     Route: 058
     Dates: start: 20050622, end: 20050926
  3. REBETOL [Suspect]
     Indication: HEPATITIS C
     Dosage: 600 MG; QD; SC;  400 MG; QD; PO
     Route: 058
     Dates: start: 20050927, end: 20060227
  4. URINORM (CON.) [Concomitant]
  5. LIVACT (ISOLEUCINE/LEUCINE/VALINE) (CON.) [Concomitant]

REACTIONS (8)
  - ANAEMIA [None]
  - ANOREXIA [None]
  - BUNDLE BRANCH BLOCK RIGHT [None]
  - CHEST X-RAY ABNORMAL [None]
  - LYMPHADENOPATHY [None]
  - PLATELET COUNT DECREASED [None]
  - SARCOIDOSIS [None]
  - WHITE BLOOD CELL COUNT DECREASED [None]
